FAERS Safety Report 6425213-9 (Version None)
Quarter: 2009Q4

REPORT INFORMATION
  Report Type: 
  Country: None (occurrence: None)
  Receive Date: 20091102
  Receipt Date: 20091102
  Transmission Date: 20100525
  Serious: Yes (Life-Threatening, Hospitalization)
  Sender: FDA-Public Use
  Company Number: None

PATIENT
  Sex: Female
  Weight: 33.9 kg

DRUGS (24)
  1. SIROLIMUS 1 MG TABLET WYETH [Suspect]
     Indication: IMMUNOSUPPRESSION
     Dosage: 1.5-3 MG (DOSE VARIED) DAILY (DIVIDED) ORAL
     Route: 048
     Dates: start: 20080728, end: 20081224
  2. SIROLIMUS 1 MG TABLET WYETH [Suspect]
     Indication: PROPHYLAXIS AGAINST TRANSPLANT REJECTION
     Dosage: 1.5-3 MG (DOSE VARIED) DAILY (DIVIDED) ORAL
     Route: 048
     Dates: start: 20080728, end: 20081224
  3. ACYCLOVIR [Concomitant]
  4. CALCIUM CARBONATE [Concomitant]
  5. CEPHALEXIN [Concomitant]
  6. CLINDAMYCIN TOPICAL [Concomitant]
  7. CLONIDINE [Concomitant]
  8. ENALAPRIL [Concomitant]
  9. ERGOCALCIFEROL [Concomitant]
  10. FLUOCINOLONE TOPICAL OIL [Concomitant]
  11. FOLIC ACID [Concomitant]
  12. GABAPENTIN [Concomitant]
  13. HEPARIN LOCK-FLUSH [Concomitant]
  14. LANSOPRAZOLE [Concomitant]
  15. LEVOTHYROXINE SODIUM [Concomitant]
  16. MAGNESIUM PLUS AMINO ACIDS [Concomitant]
  17. METRONIDAZOLE [Concomitant]
  18. POTASSIUM CHLORIDE [Concomitant]
  19. PREDNISONE [Concomitant]
  20. PROBENECID [Concomitant]
  21. SUCRALFATE [Concomitant]
  22. SULFAMETHOXAZOLE AND TRIMETHOPRIM [Concomitant]
  23. VORICONAZOLE [Concomitant]
  24. CIDOFOVIR [Concomitant]

REACTIONS (2)
  - HAEMATEMESIS [None]
  - HAEMATOCHEZIA [None]
